FAERS Safety Report 9416186 (Version 1)
Quarter: 2013Q3

REPORT INFORMATION
  Report Type: Spontaneous
  Country: KR (occurrence: None)
  Receive Date: 20130718
  Receipt Date: 20130718
  Transmission Date: 20140515
  Serious: Yes (Hospitalization)
  Sender: FDA-Public Use
  Company Number: BACL20130010

PATIENT
  Age: 35 Year
  Sex: Female

DRUGS (1)
  1. BACLOFEN [Suspect]
     Indication: RIB FRACTURE
     Route: 048

REACTIONS (1)
  - Encephalopathy [None]
